FAERS Safety Report 4770877-9 (Version None)
Quarter: 2005Q3

REPORT INFORMATION
  Report Type: 
  Country: None (occurrence: None)
  Receive Date: 20050914
  Receipt Date: 20050830
  Transmission Date: 20060218
  Serious: Yes (Hospitalization)
  Sender: FDA-Public Use
  Company Number: S05-FRA-03320-01

PATIENT
  Age: 86 Year
  Sex: Female

DRUGS (5)
  1. MEMANTINE HCL [Suspect]
     Dosage: 5 MG QD PO
     Route: 048
  2. ACEBUTOL [Concomitant]
  3. OMEPRAZOLE [Concomitant]
  4. PLAVIX [Concomitant]
  5. LAMISIL [Concomitant]

REACTIONS (2)
  - ANGINA UNSTABLE [None]
  - INAPPROPRIATE ANTIDIURETIC HORMONE SECRETION [None]
